FAERS Safety Report 5402614-9 (Version None)
Quarter: 2007Q3

REPORT INFORMATION
  Report Type: 
  Country: None (occurrence: None)
  Receive Date: 20070801
  Receipt Date: 20070222
  Transmission Date: 20080115
  Serious: No
  Sender: FDA-Public Use
  Company Number: A0641043A

PATIENT
  Sex: Male

DRUGS (1)
  1. IMITREX [Suspect]
     Indication: MIGRAINE
     Route: 048
     Dates: start: 20061001

REACTIONS (3)
  - DRY THROAT [None]
  - PARAESTHESIA [None]
  - PHARYNGOLARYNGEAL PAIN [None]
